FAERS Safety Report 5658035-7 (Version None)
Quarter: 2008Q1

REPORT INFORMATION
  Report Type: 
  Country: None (occurrence: None)
  Receive Date: 20080310
  Receipt Date: 20070402
  Transmission Date: 20080703
  Serious: No
  Sender: FDA-Public Use
  Company Number: US-BAYER-200610098BCC

PATIENT
  Age: 66 Year
  Sex: Female
  Weight: 59 kg

DRUGS (7)
  1. ALEVE [Suspect]
     Indication: ARTHRALGIA
     Dosage: TOTAL DAILY DOSE: 220 MG  UNIT DOSE: 220 MG
     Route: 048
     Dates: start: 20060103
  2. ALEVE [Suspect]
     Dosage: TOTAL DAILY DOSE: 220 MG  UNIT DOSE: 220 MG
     Route: 048
     Dates: start: 20060104
  3. TYLENOL W/ CODEINE NO. 3 [Concomitant]
  4. THYROID TAB [Concomitant]
  5. KETOPROFEN [Concomitant]
  6. OGEN [Concomitant]
  7. PROVERA [Concomitant]

REACTIONS (1)
  - DYSGEUSIA [None]
